FAERS Safety Report 18438070 (Version 2)
Quarter: 2020Q4

REPORT INFORMATION
  Report Type: Spontaneous
  Country: GB (occurrence: GB)
  Receive Date: 20201029
  Receipt Date: 20201202
  Transmission Date: 20210114
  Serious: Yes (Hospitalization, Other)
  Sender: FDA-Public Use
  Company Number: GB-AUROBINDO-AUR-APL-2020-053905

PATIENT
  Age: 48 Year
  Sex: Male

DRUGS (7)
  1. SERTRALINE [Suspect]
     Active Substance: SERTRALINE HYDROCHLORIDE
     Indication: PRODUCT USED FOR UNKNOWN INDICATION
     Dosage: UNK
     Route: 065
     Dates: start: 201910
  2. ZYBAN [Suspect]
     Active Substance: BUPROPION HYDROCHLORIDE
     Dosage: 150 MILLIGRAM
     Route: 048
     Dates: start: 20060113, end: 20060130
  3. PIRITON [Suspect]
     Active Substance: CHLORPHENIRAMINE MALEATE
     Indication: PRODUCT USED FOR UNKNOWN INDICATION
     Dosage: UNK
     Route: 065
  4. ZYBAN [Suspect]
     Active Substance: BUPROPION HYDROCHLORIDE
     Indication: SMOKING CESSATION THERAPY
     Dosage: UNK
     Route: 065
  5. ZYBAN [Suspect]
     Active Substance: BUPROPION HYDROCHLORIDE
     Dosage: 1 DF, QD (TABLET)
     Route: 065
     Dates: start: 20030515
  6. FLUOXETINE [Suspect]
     Active Substance: FLUOXETINE HYDROCHLORIDE
     Indication: PRODUCT USED FOR UNKNOWN INDICATION
     Dosage: UNK
     Route: 065
  7. CITALOPRAM [Suspect]
     Active Substance: CITALOPRAM HYDROBROMIDE
     Indication: PRODUCT USED FOR UNKNOWN INDICATION
     Dosage: UNK
     Route: 065
     Dates: start: 201605

REACTIONS (23)
  - Mood altered [Unknown]
  - Agitation [Unknown]
  - Condition aggravated [Unknown]
  - Diarrhoea [Unknown]
  - Suicidal ideation [Unknown]
  - Restless legs syndrome [Unknown]
  - Alcohol use disorder [Unknown]
  - Adverse drug reaction [Unknown]
  - Insomnia [Unknown]
  - Anxiety [Unknown]
  - Weight decreased [Unknown]
  - Drug ineffective [Unknown]
  - Mood altered [Unknown]
  - Somnolence [Unknown]
  - Night sweats [Recovering/Resolving]
  - Crying [Unknown]
  - Depression [Unknown]
  - Muscle twitching [Unknown]
  - Rash [Unknown]
  - Tremor [Unknown]
  - Erythema [Unknown]
  - Nasopharyngitis [Unknown]
  - Anger [Unknown]

NARRATIVE: CASE EVENT DATE: 20040513
